FAERS Safety Report 17918000 (Version 1)
Quarter: 2020Q2

REPORT INFORMATION
  Report Type: Spontaneous
  Country: FR (occurrence: FR)
  Receive Date: 20200619
  Receipt Date: 20200619
  Transmission Date: 20200714
  Serious: Yes (Other)
  Sender: FDA-Public Use
  Company Number: FR-LUPIN PHARMACEUTICALS INC.-2020-02925

PATIENT
  Age: 4 Year
  Sex: Female

DRUGS (1)
  1. DESLORATADINE TABLETS [Suspect]
     Active Substance: DESLORATADINE
     Indication: PRODUCT USED FOR UNKNOWN INDICATION
     Dosage: 1.25 MILLIGRAM, QD (0.06 MG/KG)
     Route: 065

REACTIONS (2)
  - Restlessness [Unknown]
  - Hallucination, visual [Recovered/Resolved]
